FAERS Safety Report 7565776-3 (Version None)
Quarter: 2011Q2

REPORT INFORMATION
  Report Type: 
  Country: None (occurrence: None)
  Receive Date: 20110616
  Receipt Date: 20110602
  Transmission Date: 20111010
  Serious: Yes (Other)
  Sender: FDA-Public Use
  Company Number: 2011SP021917

PATIENT
  Age: 74 Year
  Sex: Female
  Weight: 72.5755 kg

DRUGS (1)
  1. MIRALAX [Suspect]
     Indication: GASTROINTESTINAL DISORDER
     Dosage: 17 GM; QD; PO
     Route: 048
     Dates: start: 20110101

REACTIONS (3)
  - GLOSSODYNIA [None]
  - SWOLLEN TONGUE [None]
  - TONGUE DISORDER [None]
